FAERS Safety Report 6188808-6 (Version None)
Quarter: 2009Q2

REPORT INFORMATION
  Report Type: 
  Country: None (occurrence: None)
  Receive Date: 20090513
  Receipt Date: 20090429
  Transmission Date: 20091009
  Serious: Yes (Other)
  Sender: FDA-Public Use
  Company Number: US-PFIZER INC-2006038461

PATIENT
  Sex: Female

DRUGS (6)
  1. PROVERA [Suspect]
     Indication: HORMONE REPLACEMENT THERAPY
     Dosage: 2.5 MG, UNK
     Route: 048
     Dates: start: 19931103, end: 19950725
  2. PREMARIN [Suspect]
     Indication: HORMONE REPLACEMENT THERAPY
     Dosage: 0.625 MG, UNK
     Route: 065
     Dates: start: 19931103, end: 19961004
  3. PREMPRO [Suspect]
     Indication: HORMONE REPLACEMENT THERAPY
     Dosage: 0.625/2.5MG
     Route: 065
     Dates: start: 19961226, end: 20040129
  4. DYNACIRC [Concomitant]
     Indication: HYPERTENSION
     Dosage: UNK
     Dates: start: 19930101, end: 20060101
  5. DYAZIDE [Concomitant]
     Indication: HYPERTENSION
     Dosage: UNK
     Dates: start: 19860101
  6. DYAZIDE [Concomitant]
     Indication: FLUID RETENTION

REACTIONS (1)
  - BREAST CANCER [None]
